FAERS Safety Report 18958995 (Version 1)
Quarter: 2021Q1

REPORT INFORMATION
  Report Type: Spontaneous
  Country: RU (occurrence: RU)
  Receive Date: 20210302
  Receipt Date: 20210302
  Transmission Date: 20210420
  Serious: Yes (Other)
  Sender: FDA-Public Use
  Company Number: RU-FRESENIUS KABI-FK202101933

PATIENT

DRUGS (1)
  1. MELPHALAN (MANUFACTURER UNKNOWN) [Suspect]
     Active Substance: MELPHALAN
     Indication: NEPHROBLASTOMA
     Route: 065

REACTIONS (2)
  - Haematotoxicity [Unknown]
  - Neurotoxicity [Unknown]
